FAERS Safety Report 6493578-8 (Version None)
Quarter: 2009Q4

REPORT INFORMATION
  Report Type: 
  Country: None (occurrence: None)
  Receive Date: 20091214
  Receipt Date: 20091208
  Transmission Date: 20100525
  Serious: Yes (Death, Hospitalization)
  Sender: FDA-Public Use
  Company Number: IN-JNJFOC-20091202973

PATIENT
  Age: 65 Year
  Sex: Female

DRUGS (1)
  1. REOPRO [Suspect]
     Indication: ANGIOPLASTY

REACTIONS (1)
  - CEREBRAL HAEMORRHAGE [None]
